FAERS Safety Report 11336945 (Version 2)
Quarter: 2015Q4

REPORT INFORMATION
  Report Type: Spontaneous
  Country: FR (occurrence: FR)
  Receive Date: 20150804
  Receipt Date: 20151014
  Transmission Date: 20160304
  Serious: Yes (Hospitalization)
  Sender: FDA-Public Use
  Company Number: FR-ASTRAZENECA-2015SE74151

PATIENT
  Age: 31330 Day
  Sex: Female

DRUGS (6)
  1. OROCAL [Concomitant]
     Active Substance: CALCIUM CARBONATE
  2. MOVICOL [Concomitant]
     Active Substance: POLYETHYLENE GLYCOL 3350\POTASSIUM CHLORIDE\SODIUM BICARBONATE\SODIUM CHLORIDE
  3. PARACETAMOL [Concomitant]
     Active Substance: ACETAMINOPHEN
  4. HYTACAND [Suspect]
     Active Substance: CANDESARTAN CILEXETIL\HYDROCHLOROTHIAZIDE
     Route: 048
     Dates: end: 20150716
  5. IBUPROFEN. [Suspect]
     Active Substance: IBUPROFEN
     Route: 048
     Dates: start: 20150715, end: 20150716
  6. AUGMENTIN [Concomitant]
     Active Substance: AMOXICILLIN\CLAVULANATE POTASSIUM
     Dates: start: 20150715

REACTIONS (5)
  - Hyponatraemia [Recovered/Resolved]
  - Renal failure [Recovered/Resolved]
  - Lung disorder [Unknown]
  - Influenza [Unknown]
  - Hyperthermia [Unknown]

NARRATIVE: CASE EVENT DATE: 20150716
